FAERS Safety Report 9395733 (Version 1)
Quarter: 2013Q3

REPORT INFORMATION
  Report Type: Spontaneous
  Country: GB (occurrence: GB)
  Receive Date: 20130711
  Receipt Date: 20130711
  Transmission Date: 20140515
  Serious: Yes (Other)
  Sender: FDA-Public Use
  Company Number: GB-TEVA-416829ISR

PATIENT
  Age: 17 Year
  Sex: Female

DRUGS (2)
  1. LEVETIRACETAM [Suspect]
     Dosage: 1500 MILLIGRAM DAILY;
  2. TOPIRAMATE [Concomitant]

REACTIONS (6)
  - Grand mal convulsion [Unknown]
  - Aphasia [Unknown]
  - Cognitive disorder [Unknown]
  - Fear [Unknown]
  - Decreased appetite [Unknown]
  - Weight decreased [Unknown]
